FAERS Safety Report 7284843-5 (Version None)
Quarter: 2011Q1

REPORT INFORMATION
  Report Type: 
  Country: None (occurrence: None)
  Receive Date: 20110210
  Receipt Date: 20110203
  Transmission Date: 20110831
  Serious: Yes (Hospitalization)
  Sender: FDA-Public Use
  Company Number: US-JNJFOC-20110202036

PATIENT
  Sex: Male
  Weight: 77.2 kg

DRUGS (13)
  1. MULTI-VITAMINS [Concomitant]
  2. CIMZIA [Concomitant]
     Indication: INFLAMMATORY BOWEL DISEASE
  3. DILAUDID [Concomitant]
  4. OSCAL VITAMIN D [Concomitant]
  5. MESALAMINE [Concomitant]
  6. PREDNISONE [Concomitant]
  7. ANTIBIOTICS [Concomitant]
     Indication: INFLAMMATORY BOWEL DISEASE
  8. HYDROCORTISONE [Concomitant]
  9. PEPCID [Concomitant]
  10. IRON SUPPLEMENT [Concomitant]
  11. REMICADE [Suspect]
     Indication: INFLAMMATORY BOWEL DISEASE
     Route: 042
  12. VICODIN [Concomitant]
     Dosage: 5/500 MG
  13. AZATHIOPRINE [Concomitant]

REACTIONS (3)
  - INFLAMMATORY BOWEL DISEASE [None]
  - ILEOSTOMY [None]
  - PROCTOCOLECTOMY [None]
